FAERS Safety Report 9217791 (Version 2)
Quarter: 2013Q2

REPORT INFORMATION
  Report Type: Spontaneous
  Country: US (occurrence: US)
  Receive Date: 20130408
  Receipt Date: 20130422
  Transmission Date: 20140414
  Serious: Yes (Death)
  Sender: FDA-Public Use
  Company Number: US-ELI_LILLY_AND_COMPANY-US201111003197

PATIENT
  Sex: Female

DRUGS (4)
  1. FORTEO [Suspect]
     Indication: SENILE OSTEOPOROSIS
     Dosage: 20 UG, QD
     Route: 065
     Dates: start: 201108
  2. FORTEO [Suspect]
     Dosage: 20 UG, QD
     Route: 065
  3. FORTEO [Suspect]
     Dosage: 20 UG, QD
     Route: 065
  4. FORTEO [Suspect]
     Dosage: 20 UG, QD
     Route: 065

REACTIONS (7)
  - Cardiac failure [Fatal]
  - Chronic obstructive pulmonary disease [Fatal]
  - Mobility decreased [Unknown]
  - Pain in extremity [Unknown]
  - Malaise [Unknown]
  - Arthralgia [Unknown]
  - Injection site bruising [Unknown]
